FAERS Safety Report 15077554 (Version 1)
Quarter: 2018Q2

REPORT INFORMATION
  Report Type: Spontaneous
  Country: CA (occurrence: CA)
  Receive Date: 20180627
  Receipt Date: 20180627
  Transmission Date: 20180711
  Serious: Yes (Other)
  Sender: FDA-Public Use
  Company Number: CA-PFIZER INC-2018254684

PATIENT
  Age: 54 Year
  Sex: Male

DRUGS (2)
  1. METHOTREXATE SODIUM. [Suspect]
     Active Substance: METHOTREXATE SODIUM
     Dosage: 20 MG, UNK
     Dates: start: 20151006, end: 201612
  2. ENBREL [Concomitant]
     Active Substance: ETANERCEPT
     Dosage: 50 MG, UNK
     Dates: start: 20160724, end: 20171006

REACTIONS (3)
  - Fatigue [Unknown]
  - Drug intolerance [Unknown]
  - Diarrhoea [Unknown]
